FAERS Safety Report 16913179 (Version 1)
Quarter: 2019Q4

REPORT INFORMATION
  Report Type: Spontaneous
  Country: US (occurrence: US)
  Receive Date: 20191014
  Receipt Date: 20191014
  Transmission Date: 20200122
  Serious: No
  Sender: FDA-Public Use
  Company Number: US-C B FLEET CO INC-201812-US-003116

PATIENT
  Sex: Female

DRUGS (1)
  1. MONISTAT 3 COMBINATION PACK [Suspect]
     Active Substance: MICONAZOLE NITRATE
     Indication: FUNGAL INFECTION
     Dosage: USED ONCE
     Route: 067
     Dates: start: 20181220, end: 20181220

REACTIONS (5)
  - Vulvovaginal burning sensation [Recovered/Resolved]
  - Vulvovaginal pruritus [Recovered/Resolved]
  - Abdominal pain [Recovering/Resolving]
  - Condition aggravated [Recovered/Resolved]
  - Vaginal haemorrhage [Not Recovered/Not Resolved]
